FAERS Safety Report 11346894 (Version 1)
Quarter: 2015Q3

REPORT INFORMATION
  Report Type: Spontaneous
  Country: US (occurrence: US)
  Receive Date: 20150806
  Receipt Date: 20150806
  Transmission Date: 20151125
  Serious: No
  Sender: FDA-Public Use
  Company Number: ALCN2015US004629

PATIENT
  Age: 48 Year
  Sex: Female

DRUGS (2)
  1. SYSTANE NIGHTTIME [Suspect]
     Active Substance: MINERAL OIL\PETROLATUM
     Indication: DRY EYE
     Dosage: 1 GTT, QHS
     Route: 047
     Dates: start: 201507, end: 20150721
  2. SYSTANE LUBRICANT [Concomitant]
     Active Substance: POLYETHYLENE GLYCOL 400\PROPYLENE GLYCOL
     Indication: DRY EYE
     Dosage: 1 GTT, 2-3X
     Route: 047

REACTIONS (2)
  - Eyelid margin crusting [Recovering/Resolving]
  - Lacrimation increased [Recovering/Resolving]

NARRATIVE: CASE EVENT DATE: 20150722
